FAERS Safety Report 5932464-6 (Version None)
Quarter: 2008Q4

REPORT INFORMATION
  Report Type: 
  Country: None (occurrence: None)
  Receive Date: 20081028
  Receipt Date: 20081017
  Transmission Date: 20090506
  Serious: Yes (Death, Hospitalization, Other)
  Sender: FDA-Public Use
  Company Number: GB-JNJFOC-20060304047

PATIENT
  Sex: Female
  Weight: 73 kg

DRUGS (7)
  1. REMICADE [Suspect]
     Indication: RHEUMATOID ARTHRITIS
     Route: 042
  2. SULFASALAZINE [Concomitant]
     Route: 065
  3. METHOTREXATE [Concomitant]
     Route: 065
  4. ACETAMINOPHEN W/ PROPOXYPHENE HCL [Concomitant]
     Route: 065
  5. DICLOFENAC [Concomitant]
     Route: 065
  6. PLAQUENIL [Concomitant]
     Route: 065
  7. RANITIDINE [Concomitant]
     Route: 065

REACTIONS (1)
  - COLON CANCER STAGE IV [None]
